FAERS Safety Report 22607902 (Version 1)
Quarter: 2023Q2

REPORT INFORMATION
  Report Type: Report from Study
  Country: US (occurrence: US)
  Receive Date: 20230616
  Receipt Date: 20230616
  Transmission Date: 20230722
  Serious: Yes (Other)
  Sender: FDA-Public Use
  Company Number: US-ABBVIE-4734395

PATIENT
  Sex: Female

DRUGS (1)
  1. HUMIRA [Suspect]
     Active Substance: ADALIMUMAB
     Indication: Psoriasis
     Dosage: START DATE TEXT: 20 OR 18 YEARS AGO
     Route: 058

REACTIONS (3)
  - Accident at work [Unknown]
  - Spinal operation [Unknown]
  - Hip surgery [Unknown]

NARRATIVE: CASE EVENT DATE: 20020101
